FAERS Safety Report 12163810 (Version 1)
Quarter: 2016Q1

REPORT INFORMATION
  Report Type: Spontaneous
  Country: PL (occurrence: PL)
  Receive Date: 20160309
  Receipt Date: 20160309
  Transmission Date: 20160526
  Serious: Yes (Other)
  Sender: FDA-Public Use
  Company Number: PL-BAXTER-2016BAX011263

PATIENT
  Sex: Female

DRUGS (1)
  1. MANNITOL 20% BAXTER [Suspect]
     Active Substance: MANNITOL
     Indication: OSMOTIC DEMYELINATION SYNDROME
     Route: 065

REACTIONS (1)
  - Drug ineffective [Unknown]
